FAERS Safety Report 8850662 (Version 3)
Quarter: 2012Q4

REPORT INFORMATION
  Report Type: 
  Country: FR (occurrence: FR)
  Receive Date: 20121019
  Receipt Date: 20121116
  Transmission Date: 20130627
  Serious: Yes (Hospitalization)
  Sender: FDA-Public Use
  Company Number: FR-ASTRAZENECA-2012SE79392

PATIENT
  Age: 37 Year
  Sex: Female
  Weight: 107 kg

DRUGS (4)
  1. XEROQUEL [Suspect]
     Indication: DEPRESSION
     Route: 048
  2. XANAX [Concomitant]
  3. AVLOCARDYL [Concomitant]
     Route: 048
  4. IXEL [Concomitant]

REACTIONS (1)
  - Serotonin syndrome [Recovering/Resolving]
